FAERS Safety Report 21839211 (Version 1)
Quarter: 2023Q1

REPORT INFORMATION
  Report Type: Spontaneous
  Country: US (occurrence: None)
  Receive Date: 20230107
  Receipt Date: 20230107
  Transmission Date: 20230418
  Serious: Yes (Hospitalization)
  Sender: FDA-Public Use
  Company Number: None

PATIENT
  Sex: Female
  Weight: 98.8 kg

DRUGS (1)
  1. XELODA [Suspect]
     Active Substance: CAPECITABINE
     Dates: end: 20200129

REACTIONS (4)
  - Kidney infection [None]
  - Urinary tract infection [None]
  - Atelectasis [None]
  - Hypoxia [None]

NARRATIVE: CASE EVENT DATE: 20221204
